FAERS Safety Report 26213542 (Version 1)
Quarter: 2025Q4

REPORT INFORMATION
  Report Type: Spontaneous
  Country: CN (occurrence: CN)
  Receive Date: 20251230
  Receipt Date: 20251230
  Transmission Date: 20260117
  Serious: Yes (Life-Threatening, Other)
  Sender: BAYER HEALTHCARE PHARMACEUTICALS INC.
  Company Number: CN-BAYER-2025A170258

PATIENT
  Age: 41 Year
  Sex: Male
  Weight: 92 kg

DRUGS (3)
  1. ULTRAVIST [Suspect]
     Active Substance: IOPROMIDE
     Indication: Angiocardiogram
     Dosage: 100 ML, ONCE
     Route: 013
     Dates: start: 20251227, end: 20251227
  2. ULTRAVIST [Suspect]
     Active Substance: IOPROMIDE
     Indication: Chest pain
  3. ULTRAVIST [Suspect]
     Active Substance: IOPROMIDE
     Indication: Angina pectoris

REACTIONS (13)
  - Anaphylactic shock [Recovering/Resolving]
  - Coma [Recovered/Resolved]
  - Hypoxia [None]
  - Cerebral disorder [None]
  - Chest discomfort [None]
  - Dyspnoea [None]
  - Heart rate increased [Recovering/Resolving]
  - Blood pressure increased [Recovering/Resolving]
  - Conjunctival hyperaemia [None]
  - Grimacing [None]
  - Cyanosis [None]
  - Papule [None]
  - Breath sounds abnormal [None]

NARRATIVE: CASE EVENT DATE: 20251227
